FAERS Safety Report 8119347-0 (Version None)
Quarter: 2012Q1

REPORT INFORMATION
  Report Type: 
  Country: None (occurrence: None)
  Receive Date: 20120203
  Receipt Date: 20120126
  Transmission Date: 20120608
  Serious: Yes (Hospitalization, Other)
  Sender: FDA-Public Use
  Company Number: 2012SP005117

PATIENT
  Sex: Female

DRUGS (2)
  1. PEGASYS [Suspect]
     Indication: HEPATITIS C
     Dates: start: 20101001
  2. RIBAVIRIN [Suspect]
     Indication: HEPATITIS C
     Dosage: 1 DF,  BID, QD
     Dates: start: 20101001

REACTIONS (4)
  - CEREBROVASCULAR ACCIDENT [None]
  - EYE SWELLING [None]
  - INJECTION SITE DISCOLOURATION [None]
  - SWELLING FACE [None]
